FAERS Safety Report 5398246-1 (Version None)
Quarter: 2007Q3

REPORT INFORMATION
  Report Type: 
  Country: None (occurrence: None)
  Receive Date: 20070726
  Receipt Date: 20070716
  Transmission Date: 20080115
  Serious: Yes (Other)
  Sender: FDA-Public Use
  Company Number: BR-PFIZER INC-2007055082

PATIENT
  Sex: Female

DRUGS (1)
  1. CELEBRA [Suspect]
     Indication: BACK PAIN
     Dosage: TEXT:1 CAPSULE; 1 CAPSULE-FREQ:SINGLE: SINGLE
     Route: 048

REACTIONS (2)
  - DENGUE FEVER [None]
  - RASH MACULAR [None]
